FAERS Safety Report 6941188-8 (Version None)
Quarter: 2010Q3

REPORT INFORMATION
  Report Type: 
  Country: None (occurrence: None)
  Receive Date: 20100825
  Receipt Date: 20100629
  Transmission Date: 20110219
  Serious: No
  Sender: FDA-Public Use
  Company Number: US-BRISTOL-MYERS SQUIBB COMPANY-15152168

PATIENT
  Age: 71 Year
  Sex: Female
  Weight: 73 kg

DRUGS (4)
  1. ONGLYZA [Suspect]
     Indication: TYPE 2 DIABETES MELLITUS
     Route: 048
     Dates: start: 20100506, end: 20100101
  2. LEVOTHROID [Concomitant]
  3. GLIPIZIDE [Concomitant]
  4. LOVASTATIN [Concomitant]

REACTIONS (1)
  - HYPERGLYCAEMIA [None]
